FAERS Safety Report 12277762 (Version 3)
Quarter: 2016Q2

REPORT INFORMATION
  Report Type: Report from Study
  Country: DE (occurrence: DE)
  Receive Date: 20160418
  Receipt Date: 20160520
  Transmission Date: 20160815
  Serious: Yes (Other)
  Sender: FDA-Public Use
  Company Number: DE-BIOGEN-2016BI00218834

PATIENT
  Age: 34 Year
  Sex: Female
  Weight: 65 kg

DRUGS (2)
  1. VALETTE [Concomitant]
     Active Substance: DIENOGEST\ETHINYL ESTRADIOL
     Indication: CONTRACEPTION
     Route: 048
     Dates: start: 2010
  2. TYSABRI [Suspect]
     Active Substance: NATALIZUMAB
     Indication: MULTIPLE SCLEROSIS
     Route: 042
     Dates: start: 20111010

REACTIONS (2)
  - Abortion spontaneous [Recovered/Resolved]
  - Maternal exposure during pregnancy [Recovered/Resolved]

NARRATIVE: CASE EVENT DATE: 201512
